FAERS Safety Report 4279587-8 (Version None)
Quarter: 2004Q1

REPORT INFORMATION
  Report Type: 
  Country: None (occurrence: None)
  Receive Date: 20040127
  Receipt Date: 20030807
  Transmission Date: 20041129
  Serious: Yes (Hospitalization)
  Sender: FDA-Public Use
  Company Number: GB-BRISTOL-MYERS SQUIBB COMPANY-12348785

PATIENT
  Age: 67 Year
  Sex: Female

DRUGS (10)
  1. CARBOPLATIN [Suspect]
     Indication: OVARIAN CANCER
     Dosage: TOTAL DOSAGE RECEIVED: 800 MG  DURATION OF THERAPY: 30 DAYS
     Route: 042
     Dates: start: 20030724, end: 20030724
  2. PACLITAXEL [Suspect]
     Indication: OVARIAN CANCER
     Dosage: TOTAL DOSAGE RECEIVED: 666 MG  DURATION OF THERAPY: 30 DAYS
     Route: 042
     Dates: start: 20030724, end: 20030724
  3. GEMCITABINE [Suspect]
     Indication: OVARIAN CANCER
     Dosage: TOTAL DOSAGE RECEIVED: 4560 G  DURATION OF THERAPY: 30 DAYS
     Route: 042
     Dates: start: 20030724, end: 20030724
  4. WARFARIN SODIUM [Concomitant]
     Indication: THROMBOSIS PROPHYLAXIS
     Route: 048
     Dates: start: 20030731, end: 20030731
  5. SOTALOL HCL [Concomitant]
     Indication: HYPERTENSION
     Route: 048
     Dates: start: 20030731, end: 20030731
  6. ESOMEPRAZOLE [Concomitant]
     Dates: start: 20030731, end: 20030731
  7. CYCLIZINE [Concomitant]
     Dosage: AS NEEDED
     Dates: start: 20030731, end: 20030731
  8. CO-DANTHRUSATE [Concomitant]
     Dosage: 50/60 X2
     Dates: start: 20030730, end: 20030730
  9. DEXAMETHASONE [Concomitant]
     Dates: start: 20030730, end: 20030730
  10. SIMVASTATIN [Concomitant]

REACTIONS (3)
  - BLOOD PRESSURE SYSTOLIC INCREASED [None]
  - CEREBROVASCULAR ACCIDENT [None]
  - LACUNAR INFARCTION [None]
